FAERS Safety Report 6062757-6 (Version None)
Quarter: 2009Q1

REPORT INFORMATION
  Report Type: 
  Country: None (occurrence: None)
  Receive Date: 20090202
  Receipt Date: 20090202
  Transmission Date: 20090719
  Serious: Yes (Hospitalization)
  Sender: FDA-Public Use
  Company Number: None

PATIENT
  Age: 58 Year
  Sex: Female
  Weight: 83.9154 kg

DRUGS (1)
  1. OMNISCAN [Suspect]

REACTIONS (10)
  - COUGH [None]
  - DYSPNOEA [None]
  - EYE PRURITUS [None]
  - EYE SWELLING [None]
  - LACRIMATION INCREASED [None]
  - PHARYNGEAL OEDEMA [None]
  - PRURITUS [None]
  - SNEEZING [None]
  - SWELLING FACE [None]
  - THERAPEUTIC RESPONSE DECREASED [None]
